FAERS Safety Report 11753620 (Version 1)
Quarter: 2015Q4

REPORT INFORMATION
  Report Type: Spontaneous
  Country: JP (occurrence: JP)
  Receive Date: 20151119
  Receipt Date: 20151119
  Transmission Date: 20160304
  Serious: Yes (Hospitalization, Other)
  Sender: FDA-Public Use
  Company Number: PHJP2015JP020251

PATIENT

DRUGS (1)
  1. LAMISIL TAB [Suspect]
     Active Substance: TERBINAFINE HYDROCHLORIDE
     Indication: PRODUCT USED FOR UNKNOWN INDICATION
     Dosage: 125 MG, QD
     Route: 048

REACTIONS (5)
  - Full blood count decreased [Recovered/Resolved]
  - Intestinal obstruction [Unknown]
  - Colitis [Unknown]
  - Drug-induced liver injury [Unknown]
  - Pancytopenia [Recovered/Resolved]
